FAERS Safety Report 25732791 (Version 1)
Quarter: 2025Q3

REPORT INFORMATION
  Report Type: Spontaneous
  Country: US (occurrence: US)
  Receive Date: 20250827
  Receipt Date: 20250827
  Transmission Date: 20251021
  Serious: Yes (Other)
  Sender: ALEXION PHARMACEUTICALS
  Company Number: US-ASTRAZENECA-202508USA020613US

PATIENT
  Sex: Female

DRUGS (1)
  1. BYDUREON [Suspect]
     Active Substance: EXENATIDE
     Route: 065

REACTIONS (6)
  - Respiratory distress [Unknown]
  - Nausea [Unknown]
  - Idiopathic urticaria [Unknown]
  - Asthma [Unknown]
  - Immunodeficiency [Unknown]
  - Mast cell activation syndrome [Unknown]
